FAERS Safety Report 10821026 (Version 2)
Quarter: 2015Q2

REPORT INFORMATION
  Report Type: Report from Study
  Country: ES (occurrence: ES)
  Receive Date: 20150218
  Receipt Date: 20150428
  Transmission Date: 20150821
  Serious: Yes (Death, Life-Threatening, Hospitalization)
  Sender: FDA-Public Use
  Company Number: ES-CELGENE-ESP-2014113067

PATIENT
  Age: 69 Year
  Sex: Male
  Weight: 84 kg

DRUGS (32)
  1. REVLIMID [Suspect]
     Active Substance: LENALIDOMIDE
     Route: 048
     Dates: start: 20121010, end: 20131218
  2. LORAZEPAM. [Concomitant]
     Active Substance: LORAZEPAM
     Indication: ANXIETY
     Route: 048
     Dates: start: 20130425, end: 20141127
  3. LYRICA [Concomitant]
     Active Substance: PREGABALIN
     Indication: NEURALGIA
     Route: 048
     Dates: start: 20111007, end: 20141128
  4. REVLIMID [Suspect]
     Active Substance: LENALIDOMIDE
     Route: 048
     Dates: start: 20140212, end: 20140324
  5. FUROSEMIDE. [Concomitant]
     Active Substance: FUROSEMIDE
     Indication: PROPHYLAXIS
     Dosage: 20 MILLIGRAM
     Route: 041
     Dates: start: 20141118, end: 20141128
  6. ALLOPURINOL. [Concomitant]
     Active Substance: ALLOPURINOL
     Dosage: DOSE INCREASED
     Route: 048
     Dates: start: 20141118, end: 20141119
  7. PARACETAMOL [Concomitant]
     Active Substance: ACETAMINOPHEN
     Indication: PYREXIA
     Route: 041
     Dates: start: 20141126, end: 20141129
  8. FENTANYL. [Concomitant]
     Active Substance: FENTANYL
     Dosage: DOSE REDUCED
     Route: 062
     Dates: start: 20141121, end: 20141124
  9. PUNTUAL [Concomitant]
     Route: 048
     Dates: start: 20141126, end: 20141128
  10. REVLIMID [Suspect]
     Active Substance: LENALIDOMIDE
     Indication: PLASMA CELL MYELOMA
     Route: 048
     Dates: start: 20111007, end: 20111117
  11. REVLIMID [Suspect]
     Active Substance: LENALIDOMIDE
     Route: 048
     Dates: start: 20120912, end: 20121009
  12. REVLIMID [Suspect]
     Active Substance: LENALIDOMIDE
     Route: 048
     Dates: start: 20120227, end: 20120424
  13. SULFAMETHOXAZOLE-TRIMETHOPRIM (SMZ) [Concomitant]
     Active Substance: SULFAMETHOXAZOLE\TRIMETHOPRIM
     Indication: INFECTION PROPHYLAXIS
     Dosage: 800/160 MG
     Route: 048
     Dates: start: 20140401, end: 20141128
  14. FUROSEMIDE. [Concomitant]
     Active Substance: FUROSEMIDE
     Indication: OEDEMA
     Route: 048
     Dates: start: 20130625, end: 20141117
  15. SEVREDOL [Concomitant]
     Active Substance: MORPHINE
     Route: 048
     Dates: start: 20141124, end: 20141128
  16. FENTANYL. [Concomitant]
     Active Substance: FENTANYL
     Indication: BONE PAIN
     Route: 062
     Dates: start: 20140502, end: 20141120
  17. FENTANYL. [Concomitant]
     Active Substance: FENTANYL
     Dosage: DOSE INCREASED
     Route: 062
     Dates: start: 20141126, end: 20141128
  18. REVLIMID [Suspect]
     Active Substance: LENALIDOMIDE
     Route: 048
     Dates: start: 20120425, end: 20120911
  19. OMEPRAZOLE. [Concomitant]
     Active Substance: OMEPRAZOLE
     Indication: PROPHYLAXIS
     Route: 048
     Dates: start: 20070302, end: 20141117
  20. ALLOPURINOL. [Concomitant]
     Active Substance: ALLOPURINOL
     Indication: PROPHYLAXIS
     Route: 048
     Dates: start: 20111118, end: 20141117
  21. ALLOPURINOL. [Concomitant]
     Active Substance: ALLOPURINOL
     Dosage: DOSE REDUCED
     Route: 048
     Dates: start: 20141120, end: 20141127
  22. LOSARTAN [Concomitant]
     Active Substance: LOSARTAN
     Indication: HYPERTENSION
     Route: 048
     Dates: start: 20141118, end: 20141128
  23. PLANTAGO OVATA [Concomitant]
     Active Substance: PLANTAGO OVATA LEAF
     Route: 048
     Dates: start: 20110313, end: 20141117
  24. REVLIMID [Suspect]
     Active Substance: LENALIDOMIDE
     Route: 048
     Dates: start: 20131219, end: 20140211
  25. PARACETAMOL [Concomitant]
     Active Substance: ACETAMINOPHEN
     Indication: BONE PAIN
     Route: 048
     Dates: start: 20141111, end: 20141117
  26. CAPENON [Concomitant]
     Indication: HYPERTENSION
     Route: 048
     Dates: start: 200908, end: 20141117
  27. REVLIMID [Suspect]
     Active Substance: LENALIDOMIDE
     Route: 048
     Dates: start: 20111118, end: 20120226
  28. CC-4047 (PRE-TREATMENT) [Suspect]
     Active Substance: POMALIDOMIDE
     Indication: PLASMA CELL MYELOMA
     Route: 048
  29. SEVREDOL [Concomitant]
     Active Substance: MORPHINE
     Indication: BONE PAIN
     Dosage: 2 MILLIGRAM
     Route: 048
     Dates: start: 20140502, end: 20141123
  30. AMLODIPINE [Concomitant]
     Active Substance: AMLODIPINE BESYLATE
     Indication: HYPERTENSION
     Route: 048
     Dates: start: 20141118, end: 20141128
  31. PLANTAGO OVATA [Concomitant]
     Active Substance: PLANTAGO OVATA LEAF
     Indication: CONSTIPATION PROPHYLAXIS
     Route: 048
     Dates: start: 20141118, end: 20141120
  32. PUNTUAL [Concomitant]
     Indication: CONSTIPATION PROPHYLAXIS
     Route: 048
     Dates: start: 20141124, end: 20141125

REACTIONS (2)
  - Renal cancer metastatic [Not Recovered/Not Resolved]
  - Acute respiratory failure [Fatal]

NARRATIVE: CASE EVENT DATE: 20141117
